FAERS Safety Report 19463105 (Version 2)
Quarter: 2022Q3

REPORT INFORMATION
  Report Type: Spontaneous
  Country: CA (occurrence: None)
  Receive Date: 20210625
  Receipt Date: 20220801
  Transmission Date: 20221026
  Serious: Yes (Death)
  Sender: FDA-Public Use
  Company Number: 2021A562760

PATIENT

DRUGS (18)
  1. QUETIAPINE [Suspect]
     Active Substance: QUETIAPINE
     Indication: Bipolar disorder
     Dosage: 152 NG/ML
     Route: 065
  2. QUETIAPINE [Suspect]
     Active Substance: QUETIAPINE
     Indication: Anxiety
     Dosage: 152 NG/ML
     Route: 065
  3. QUETIAPINE [Suspect]
     Active Substance: QUETIAPINE
     Indication: Depression
     Dosage: 152 NG/ML
     Route: 065
  4. COCAINE [Suspect]
     Active Substance: COCAINE
     Indication: Bipolar disorder
     Dosage: 128 NG/ML
     Route: 065
  5. COCAINE [Suspect]
     Active Substance: COCAINE
     Indication: Anxiety
     Dosage: 128 NG/ML
     Route: 065
  6. COCAINE [Suspect]
     Active Substance: COCAINE
     Indication: Depression
     Dosage: 128 NG/ML
     Route: 065
  7. ALCOHOL [Suspect]
     Active Substance: ALCOHOL
     Indication: Bipolar disorder
     Dosage: 52 MG/ML
     Route: 065
  8. ALCOHOL [Suspect]
     Active Substance: ALCOHOL
     Indication: Anxiety
     Dosage: 52 MG/ML
     Route: 065
  9. ALCOHOL [Suspect]
     Active Substance: ALCOHOL
     Indication: Depression
     Dosage: 52 MG/ML
     Route: 065
  10. FENTANYL [Suspect]
     Active Substance: FENTANYL
     Indication: Bipolar disorder
     Dosage: 5 NG/ML
     Route: 065
  11. FENTANYL [Suspect]
     Active Substance: FENTANYL
     Indication: Anxiety
     Dosage: 5 NG/ML
     Route: 065
  12. FENTANYL [Suspect]
     Active Substance: FENTANYL
     Indication: Depression
     Dosage: 5 NG/ML
     Route: 065
  13. TRAZODONE [Suspect]
     Active Substance: TRAZODONE HYDROCHLORIDE
     Indication: Bipolar disorder
     Dosage: DOSE UNKNOWN
     Route: 065
  14. TRAZODONE [Suspect]
     Active Substance: TRAZODONE HYDROCHLORIDE
     Indication: Anxiety
     Dosage: DOSE UNKNOWN
     Route: 065
  15. TRAZODONE [Suspect]
     Active Substance: TRAZODONE HYDROCHLORIDE
     Indication: Depression
     Dosage: DOSE UNKNOWN
     Route: 065
  16. VENLAFAXINE HYDROCHLORIDE [Suspect]
     Active Substance: VENLAFAXINE HYDROCHLORIDE
     Indication: Bipolar disorder
     Dosage: 245 NG/ML
     Route: 065
  17. VENLAFAXINE HYDROCHLORIDE [Suspect]
     Active Substance: VENLAFAXINE HYDROCHLORIDE
     Indication: Anxiety
     Dosage: 245 NG/ML
     Route: 065
  18. VENLAFAXINE HYDROCHLORIDE [Suspect]
     Active Substance: VENLAFAXINE HYDROCHLORIDE
     Indication: Depression
     Dosage: 245 NG/ML
     Route: 065

REACTIONS (5)
  - Alcohol test positive [Fatal]
  - Opiates positive [Fatal]
  - Toxicity to various agents [Fatal]
  - Toxicologic test abnormal [Fatal]
  - Drug abuse [Fatal]
